FAERS Safety Report 5506679-5 (Version None)
Quarter: 2007Q4

REPORT INFORMATION
  Report Type: 
  Country: None (occurrence: None)
  Receive Date: 20071105
  Receipt Date: 20071026
  Transmission Date: 20080405
  Serious: Yes (Death, Hospitalization)
  Sender: FDA-Public Use
  Company Number: VN-BAXTER-2007BH007433

PATIENT
  Sex: Male
  Weight: 68 kg

DRUGS (1)
  1. DIANEAL [Suspect]
     Indication: RENAL FAILURE CHRONIC
     Route: 033
     Dates: start: 20070501

REACTIONS (3)
  - CATHETER RELATED COMPLICATION [None]
  - DEATH [None]
  - PERITONITIS BACTERIAL [None]
